FAERS Safety Report 15583225 (Version 1)
Quarter: 2018Q4

REPORT INFORMATION
  Report Type: Spontaneous
  Country: US (occurrence: US)
  Receive Date: 20181031
  Receipt Date: 20181031
  Transmission Date: 20190205
  Serious: No
  Sender: FDA-Public Use
  Company Number: None

PATIENT
  Age: 46 Year
  Sex: Female

DRUGS (2)
  1. MYCOPHENOLATE MOF TAB 500MG [Suspect]
     Active Substance: MYCOPHENOLATE MOFETIL
     Dates: start: 20180701
  2. MOBIC [Suspect]
     Active Substance: MELOXICAM

REACTIONS (6)
  - Myalgia [None]
  - Arthralgia [None]
  - Confusional state [None]
  - Dizziness [None]
  - Disorientation [None]
  - Vertigo [None]

NARRATIVE: CASE EVENT DATE: 20181028
